FAERS Safety Report 5507716-4 (Version None)
Quarter: 2007Q4

REPORT INFORMATION
  Report Type: 
  Country: None (occurrence: None)
  Receive Date: 20071106
  Receipt Date: 20071106
  Transmission Date: 20080405
  Serious: Yes (Other)
  Sender: FDA-Public Use
  Company Number: A0691568A

PATIENT
  Age: 52 Year
  Sex: Female

DRUGS (2)
  1. ALLI [Suspect]
     Indication: DRUG USE FOR UNKNOWN INDICATION
     Dates: start: 20071030
  2. LISINOPRIL [Concomitant]

REACTIONS (3)
  - FAECAL INCONTINENCE [None]
  - FAECES DISCOLOURED [None]
  - RECTAL DISCHARGE [None]
